FAERS Safety Report 22815689 (Version 8)
Quarter: 2024Q4

REPORT INFORMATION
  Report Type: Report from Study
  Country: JP (occurrence: JP)
  Receive Date: 20230811
  Receipt Date: 20241202
  Transmission Date: 20250115
  Serious: Yes (Life-Threatening, Hospitalization, Disabling, Other)
  Sender: ABBVIE
  Company Number: JP-TAKEDA-2023TJP010455

PATIENT
  Age: 72 Year
  Sex: Male
  Weight: 56 kg

DRUGS (12)
  1. LEUPROLIDE ACETATE [Suspect]
     Active Substance: LEUPROLIDE ACETATE
     Indication: Bulbospinal muscular atrophy congenital
     Dosage: FORM STRENGTH:11.25 MILLIGRAM, Q3MONTHS
     Route: 058
     Dates: start: 20220804, end: 20230928
  2. NIFEDIPINE [Concomitant]
     Active Substance: NIFEDIPINE
     Indication: Product used for unknown indication
     Dosage: FORM STRENGTH:20 MILLIGRAM, DOSE FORM: UNKNOWN
     Route: 065
     Dates: end: 20231105
  3. NIFEDIPINE [Concomitant]
     Active Substance: NIFEDIPINE
     Indication: Product used for unknown indication
     Dosage: FORM STRENGTH:40 MILLIGRAM, DOSE FORM: UNKNOWN
     Route: 065
     Dates: end: 20231105
  4. LURICUL VG [Concomitant]
     Indication: Eczema
     Route: 065
     Dates: end: 20231105
  5. MAGNESIUM OXIDE [Concomitant]
     Active Substance: MAGNESIUM OXIDE
     Indication: Product used for unknown indication
     Dosage: FORM STRENGTH: 660 MILLIGRAM, DOSE FORM: UNKNOWN
     Route: 065
     Dates: end: 20231105
  6. ICOSAPENT ETHYL [Concomitant]
     Active Substance: ICOSAPENT ETHYL
     Indication: Product used for unknown indication
     Dosage: FORM STRENGTH:1800 MILLIGRAM, DOSE FORM: UNKNOWN
     Route: 065
     Dates: end: 20231105
  7. CLOPIDOGREL BISULFATE [Concomitant]
     Active Substance: CLOPIDOGREL BISULFATE
     Indication: Product used for unknown indication
     Dosage: FORM STRENGTH:75 MILLIGRAM, DOSE FORM: UNKNOWN
     Route: 065
  8. FUDOSTEINE [Concomitant]
     Active Substance: FUDOSTEINE
     Indication: Product used for unknown indication
     Dosage: FORM STRENGTH:800 MILLIGRAM, DOSE FORM: UNKNOWN
     Route: 065
     Dates: end: 20231105
  9. TORSEMIDE [Concomitant]
     Active Substance: TORSEMIDE
     Indication: Hypertension
     Dosage: FORM STRENGTH: 4 MILLIGRAM, DOSE FORM: UNKNOWN
     Route: 065
     Dates: end: 20231105
  10. OLOPATADINE HYDROCHLORIDE [Concomitant]
     Active Substance: OLOPATADINE HYDROCHLORIDE
     Indication: Product used for unknown indication
     Dosage: UNKNOWN
     Route: 065
     Dates: end: 20231105
  11. EFINACONAZOLE [Concomitant]
     Active Substance: EFINACONAZOLE
     Indication: Product used for unknown indication
     Dosage: DOSE FORM: UNKNOWN
     Route: 065
     Dates: end: 20231105
  12. RABEPRAZOLE SODIUM [Concomitant]
     Active Substance: RABEPRAZOLE SODIUM
     Indication: Product used for unknown indication
     Dosage: 10 MILLIGRAM, DOSE FORM: UNKNOWN
     Route: 065
     Dates: end: 20231105

REACTIONS (13)
  - Atrial fibrillation [Recovering/Resolving]
  - Insomnia [Recovering/Resolving]
  - Hypokalaemia [Not Recovered/Not Resolved]
  - Pneumonia aspiration [Recovered/Resolved with Sequelae]
  - Flatulence [Recovering/Resolving]
  - Atrial fibrillation [Recovered/Resolved]
  - Septic shock [Recovered/Resolved]
  - Hyperglycaemia [Recovered/Resolved]
  - Diarrhoea [Not Recovered/Not Resolved]
  - Muscular weakness [Recovered/Resolved with Sequelae]
  - Immobilisation syndrome [Not Recovered/Not Resolved]
  - Respiratory disorder [Recovered/Resolved with Sequelae]
  - Dysphagia [Recovered/Resolved with Sequelae]

NARRATIVE: CASE EVENT DATE: 20221024
